FAERS Safety Report 5082087-9 (Version None)
Quarter: 2006Q3

REPORT INFORMATION
  Report Type: 
  Country: None (occurrence: None)
  Receive Date: 20060815
  Receipt Date: 20060815
  Transmission Date: 20061208
  Serious: Yes (Life-Threatening)
  Sender: FDA-Public Use
  Company Number: None

PATIENT
  Age: 50 Year
  Sex: Female

DRUGS (9)
  1. POLYETHYLENE GLYCOL [Suspect]
     Indication: CONSTIPATION
     Dosage: PO
     Route: 048
     Dates: start: 20060727
  2. ACIPHEX [Concomitant]
  3. HYDROCHLOROTHIAZIDE [Concomitant]
  4. TRILEPTAL [Concomitant]
  5. ALPRAZOLAM [Concomitant]
  6. KETOPROFEN [Concomitant]
  7. COPAXONE [Concomitant]
  8. ATENOLOL [Concomitant]
  9. CYMBALTA [Concomitant]

REACTIONS (3)
  - DYSPNOEA [None]
  - PHARMACEUTICAL PRODUCT COMPLAINT [None]
  - PHARYNGEAL OEDEMA [None]
